FAERS Safety Report 25197025 (Version 1)
Quarter: 2025Q2

REPORT INFORMATION
  Report Type: Spontaneous
  Country: SI (occurrence: SI)
  Receive Date: 20250415
  Receipt Date: 20250415
  Transmission Date: 20250716
  Serious: Yes (Death, Other)
  Sender: ALEXION PHARMACEUTICALS
  Company Number: SI-ASTRAZENECA-202504GLO006853SI

PATIENT
  Age: 68 Year

DRUGS (5)
  1. FASLODEX [Suspect]
     Active Substance: FULVESTRANT
     Dosage: 5 MILLIGRAM, QD
     Route: 065
  2. FASLODEX [Suspect]
     Active Substance: FULVESTRANT
  3. ENHERTU [Suspect]
     Active Substance: FAM-TRASTUZUMAB DERUXTECAN-NXKI
     Route: 065
  4. ABEMACICLIB [Concomitant]
     Active Substance: ABEMACICLIB
     Route: 065
  5. EVEROLIMUS [Concomitant]
     Active Substance: EVEROLIMUS
     Route: 065

REACTIONS (2)
  - Shock haemorrhagic [Fatal]
  - Pneumonitis [Unknown]
